FAERS Safety Report 5277049-2 (Version None)
Quarter: 2007Q1

REPORT INFORMATION
  Report Type: 
  Country: None (occurrence: None)
  Receive Date: 20070327
  Receipt Date: 20070227
  Transmission Date: 20070707
  Serious: No
  Sender: FDA-Public Use
  Company Number: US-BRISTOL-MYERS SQUIBB COMPANY-13693940

PATIENT
  Age: 54 Year
  Sex: Female
  Weight: 68 kg

DRUGS (9)
  1. ORENCIA [Suspect]
     Indication: RHEUMATOID ARTHRITIS
     Dates: start: 20061001
  2. METHOTREXATE [Concomitant]
  3. FOLIC ACID [Concomitant]
  4. ZYRTEC [Concomitant]
  5. AMBIEN [Concomitant]
  6. VESICARE [Concomitant]
  7. COZAAR [Concomitant]
  8. BONIVA [Concomitant]
  9. PATANOL [Concomitant]

REACTIONS (1)
  - DRUG INEFFECTIVE [None]
